FAERS Safety Report 6850748-4 (Version None)
Quarter: 2010Q3

REPORT INFORMATION
  Report Type: 
  Country: None (occurrence: None)
  Receive Date: 20100716
  Receipt Date: 20071021
  Transmission Date: 20110219
  Serious: No
  Sender: FDA-Public Use
  Company Number: US-PFIZER INC-2007088990

PATIENT
  Sex: Male
  Weight: 131 kg

DRUGS (5)
  1. CHANTIX [Suspect]
     Indication: SMOKING CESSATION THERAPY
     Dates: start: 20071018
  2. CYCLOBENZAPRINE [Concomitant]
     Indication: BACK DISORDER
  3. FLEXERIL [Concomitant]
     Indication: BACK DISORDER
  4. HYDROCODONE BITARTRATE AND IBUPROFEN [Concomitant]
     Indication: BACK DISORDER
  5. ZOLOFT [Concomitant]
     Indication: DEPRESSION

REACTIONS (2)
  - DRY MOUTH [None]
  - INAPPROPRIATE SCHEDULE OF DRUG ADMINISTRATION [None]
